FAERS Safety Report 5352581-1 (Version None)
Quarter: 2007Q2

REPORT INFORMATION
  Report Type: 
  Country: None (occurrence: None)
  Receive Date: 20070611
  Receipt Date: 20070605
  Transmission Date: 20071010
  Serious: Yes (Life-Threatening, Hospitalization, Disabling)
  Sender: FDA-Public Use
  Company Number: US-MERCK-0706USA00884

PATIENT
  Sex: Male

DRUGS (1)
  1. INVANZ [Suspect]
     Indication: GASTROENTERITIS ESCHERICHIA COLI
     Route: 042
     Dates: start: 20070301

REACTIONS (2)
  - OSTEOMYELITIS [None]
  - RECURARISATION [None]
